FAERS Safety Report 12118745 (Version 1)
Quarter: 2016Q1

REPORT INFORMATION
  Report Type: Spontaneous
  Country: US (occurrence: US)
  Receive Date: 20160226
  Receipt Date: 20160226
  Transmission Date: 20160526
  Serious: No
  Sender: FDA-Public Use
  Company Number: US-FRI-1000080444

PATIENT
  Sex: Female

DRUGS (4)
  1. LYRICA [Suspect]
     Active Substance: PREGABALIN
     Indication: CARPAL TUNNEL SYNDROME
     Dosage: 300 MG
     Route: 048
  2. VIIBRYD [Suspect]
     Active Substance: VILAZODONE HYDROCHLORIDE
     Dosage: 20 MG
     Route: 048
     Dates: end: 201509
  3. VIIBRYD [Suspect]
     Active Substance: VILAZODONE HYDROCHLORIDE
     Indication: DEPRESSION
     Dosage: 10 MG
     Route: 048
     Dates: start: 201504
  4. TRAMADOL. [Concomitant]
     Active Substance: TRAMADOL
     Indication: PAIN
     Dosage: 150 MG
     Route: 048

REACTIONS (5)
  - Weight increased [Recovering/Resolving]
  - Headache [Recovering/Resolving]
  - Euphoric mood [Recovered/Resolved]
  - Memory impairment [Recovering/Resolving]
  - Abdominal distension [Recovering/Resolving]
